FAERS Safety Report 4493221-3 (Version None)
Quarter: 2004Q4

REPORT INFORMATION
  Report Type: 
  Country: None (occurrence: None)
  Receive Date: 20041025
  Receipt Date: 20021211
  Transmission Date: 20050328
  Serious: No
  Sender: FDA-Public Use
  Company Number: WSDF_00453

PATIENT
  Age: 5 Year

DRUGS (1)
  1. WINRHO SDF [Suspect]
     Indication: IDIOPATHIC THROMBOCYTOPENIC PURPURA

REACTIONS (4)
  - ABDOMINAL PAIN [None]
  - HAEMOGLOBIN DECREASED [None]
  - MEDICATION ERROR [None]
  - PYREXIA [None]
